FAERS Safety Report 4951664-5 (Version None)
Quarter: 2006Q1

REPORT INFORMATION
  Report Type: 
  Country: None (occurrence: None)
  Receive Date: 20060323
  Receipt Date: 20060315
  Transmission Date: 20060701
  Serious: Yes (Hospitalization)
  Sender: FDA-Public Use
  Company Number: PHRM2006FR01050

PATIENT
  Age: 75 Year
  Sex: Male

DRUGS (4)
  1. MOPRAL [Suspect]
     Dosage: 20 MG/DAY
     Route: 048
     Dates: start: 20051207, end: 20060213
  2. TAHOR [Suspect]
     Dosage: 10 MG/DAY
     Route: 048
     Dates: start: 20051207, end: 20060213
  3. PLAVIX [Suspect]
     Route: 048
     Dates: start: 20050201, end: 20060213
  4. COTAREG [Suspect]
     Route: 048
     Dates: start: 20041201, end: 20060213

REACTIONS (4)
  - FATIGUE [None]
  - INTERMITTENT CLAUDICATION [None]
  - PLATELET COUNT DECREASED [None]
  - THROMBOCYTOPENIA [None]
